FAERS Safety Report 9647376 (Version 1)
Quarter: 2013Q4

REPORT INFORMATION
  Report Type: Report from Study
  Country: AR (occurrence: AR)
  Receive Date: 20131027
  Receipt Date: 20131027
  Transmission Date: 20140711
  Serious: Yes (Hospitalization, Disabling)
  Sender: FDA-Public Use
  Company Number: AR-US-EMD SERONO, INC.-7244892

PATIENT
  Sex: Female

DRUGS (2)
  1. REBIF [Suspect]
     Indication: MULTIPLE SCLEROSIS
     Dates: start: 20011115, end: 20020611
  2. REBIF [Suspect]
     Dates: start: 20020616

REACTIONS (2)
  - Carotid body tumour [Recovering/Resolving]
  - VIIth nerve paralysis [Recovering/Resolving]
